FAERS Safety Report 26076036 (Version 1)
Quarter: 2025Q4

REPORT INFORMATION
  Report Type: Report from Study
  Country: EU (occurrence: EU)
  Receive Date: 20251121
  Receipt Date: 20251121
  Transmission Date: 20260118
  Serious: Yes (Death, Life-Threatening, Hospitalization)
  Sender: PFIZER
  Company Number: EU-PFIZER INC-PV202500029569

PATIENT
  Age: 72 Year
  Sex: Female
  Weight: 66.5 kg

DRUGS (2)
  1. ELRANATAMAB [Suspect]
     Active Substance: ELRANATAMAB
     Indication: Plasma cell myeloma
     Dosage: 76 MG, 2-WEEKLY
     Route: 042
     Dates: start: 20250224
  2. IBANDRONATE SODIUM [Concomitant]
     Active Substance: IBANDRONATE SODIUM
     Indication: Prophylaxis
     Dosage: UNK
     Route: 042
     Dates: start: 20241202

REACTIONS (2)
  - Hepatic failure [Fatal]
  - Diarrhoea [Recovered/Resolved]

NARRATIVE: CASE EVENT DATE: 20250310
